FAERS Safety Report 5855757-X (Version None)
Quarter: 2008Q3

REPORT INFORMATION
  Report Type: 
  Country: None (occurrence: None)
  Receive Date: 20080825
  Receipt Date: 20080815
  Transmission Date: 20090109
  Serious: Yes (Hospitalization)
  Sender: FDA-Public Use
  Company Number: DE-JNJFOC-20080706228

PATIENT
  Sex: Male
  Weight: 70 kg

DRUGS (1)
  1. RISPERDAL [Suspect]
     Indication: DRUG USE FOR UNKNOWN INDICATION
     Route: 048

REACTIONS (4)
  - ACCIDENTAL EXPOSURE [None]
  - DIZZINESS [None]
  - HYPERTENSION [None]
  - NAUSEA [None]
